FAERS Safety Report 19763403 (Version 2)
Quarter: 2021Q3

REPORT INFORMATION
  Report Type: Report from Study
  Country: DE (occurrence: DE)
  Receive Date: 20210830
  Receipt Date: 20210921
  Transmission Date: 20211014
  Serious: Yes (Other)
  Sender: FDA-Public Use
  Company Number: DE-MYLANLABS-2021M1055801

PATIENT
  Sex: Female
  Weight: 64 kg

DRUGS (8)
  1. LETROZOLE. [Suspect]
     Active Substance: LETROZOLE
     Indication: BREAST CANCER METASTATIC
     Dosage: 2.5 MG, QD
     Route: 048
     Dates: start: 20190925
  2. KISQALI [Suspect]
     Active Substance: RIBOCICLIB
     Dosage: UNK
     Dates: start: 20191008
  3. KISQALI [Suspect]
     Active Substance: RIBOCICLIB
     Dosage: 400 MG, QD (SCHEMA 21 DAYS INTAKE, SEVEN DAYS PAUSE)
     Route: 048
     Dates: start: 20200729, end: 20200825
  4. KISQALI [Suspect]
     Active Substance: RIBOCICLIB
     Dosage: 200 MG, QD
     Route: 048
     Dates: start: 20200910
  5. VERTIGO?VOMEX                      /00019501/ [Concomitant]
     Indication: DIZZINESS
     Dosage: 20MG/40MG, TID
     Dates: start: 20200331
  6. KISQALI [Suspect]
     Active Substance: RIBOCICLIB
     Indication: BREAST CANCER METASTATIC
     Dosage: 400 MG, QD (SCHEMA 21 DAYS INTAKE, SEVEN DAYS PAUSE)
     Route: 048
     Dates: start: 20200617, end: 20200713
  7. KISQALI [Suspect]
     Active Substance: RIBOCICLIB
     Dosage: 400 MG QD (SCHEMA 21 DAYS INTAKE, SEVEN DAYS PAUSE)
     Route: 048
     Dates: start: 20191206, end: 20200602
  8. KISQALI [Suspect]
     Active Substance: RIBOCICLIB
     Dosage: 600 MG QD (SCHEMA 21 DAYS INTAKE, SEVEN DAYS PAUSE)
     Route: 048
     Dates: start: 20190925, end: 20191127

REACTIONS (4)
  - Leukopenia [Not Recovered/Not Resolved]
  - Thrombocytopenia [Not Recovered/Not Resolved]
  - Pain in extremity [Recovered/Resolved]
  - Skin fissures [Recovered/Resolved]

NARRATIVE: CASE EVENT DATE: 20191008
